FAERS Safety Report 25448911 (Version 1)
Quarter: 2025Q2

REPORT INFORMATION
  Report Type: Spontaneous
  Country: JP (occurrence: JP)
  Receive Date: 20250618
  Receipt Date: 20250618
  Transmission Date: 20250717
  Serious: Yes (Death, Hospitalization, Other)
  Sender: SPECGX
  Company Number: JP-SPECGX-T202501087

PATIENT
  Age: 3 Decade
  Sex: Female

DRUGS (2)
  1. METHADONE [Suspect]
     Active Substance: METHADONE HYDROCHLORIDE
     Indication: Cancer pain
     Route: 048
  2. MORPHINE HYDROCHLORIDE [Concomitant]
     Active Substance: MORPHINE HYDROCHLORIDE
     Indication: Cancer pain
     Route: 008

REACTIONS (12)
  - Oropharyngeal cancer [Fatal]
  - Neoplasm progression [Fatal]
  - Pain [Recovering/Resolving]
  - Condition aggravated [Recovering/Resolving]
  - Delirium [Recovering/Resolving]
  - Tumour haemorrhage [Unknown]
  - Metastases to central nervous system [Unknown]
  - Metastases to thorax [Unknown]
  - Depressed level of consciousness [Unknown]
  - Malaise [Unknown]
  - Somnolence [Unknown]
  - Drug ineffective [Unknown]
